FAERS Safety Report 24328508 (Version 2)
Quarter: 2024Q4

REPORT INFORMATION
  Report Type: Spontaneous
  Country: US (occurrence: US)
  Receive Date: 20240917
  Receipt Date: 20241008
  Transmission Date: 20250115
  Serious: Yes (Hospitalization)
  Sender: DOMPE FARMACEUTICI
  Company Number: US-FARMAPROD-202409-3190

PATIENT
  Sex: Male

DRUGS (24)
  1. OXERVATE [Suspect]
     Active Substance: CENEGERMIN-BKBJ
     Indication: Neurotrophic keratopathy
     Route: 047
     Dates: start: 20240819
  2. FLUTICASONE PROPIONATE [Concomitant]
     Active Substance: FLUTICASONE PROPIONATE
  3. SYSTANE (HYPROMELLOSE 2910 (4000 MPA.S)) [Concomitant]
     Active Substance: HYPROMELLOSE 2910 (4000 MPA.S)
     Dosage: 0.3 %-0.4%
  4. VITAMIN E [Concomitant]
     Active Substance: .ALPHA.-TOCOPHEROL
  5. PREDNISONE [Concomitant]
     Active Substance: PREDNISONE
  6. MELATONIN [Concomitant]
     Active Substance: MELATONIN
  7. ERYTHROMYCIN [Concomitant]
     Active Substance: ERYTHROMYCIN
  8. FLAREX [Concomitant]
     Active Substance: FLUOROMETHOLONE ACETATE
  9. MEMANTINE [Concomitant]
     Active Substance: MEMANTINE
  10. FAMCICLOVIR [Concomitant]
     Active Substance: FAMCICLOVIR
  11. ATORVASTATIN CALCIUM [Concomitant]
     Active Substance: ATORVASTATIN CALCIUM
  12. ELIQUIS [Concomitant]
     Active Substance: APIXABAN
  13. FERROUS SULFATE [Concomitant]
     Active Substance: FERROUS SULFATE
  14. FUROSEMIDE [Concomitant]
     Active Substance: FUROSEMIDE
  15. XIIDRA [Concomitant]
     Active Substance: LIFITEGRAST
  16. RASAGILINE MESYLATE [Concomitant]
     Active Substance: RASAGILINE MESYLATE
  17. LEVOTHYROXINE SODIUM [Concomitant]
     Active Substance: LEVOTHYROXINE SODIUM
  18. CITALOPRAM HYDROBROMIDE [Concomitant]
     Active Substance: CITALOPRAM HYDROBROMIDE
  19. METFORMIN HYDROCHLORIDE [Concomitant]
     Active Substance: METFORMIN HYDROCHLORIDE
     Dosage: OSMOTIC
  20. DONEPEZIL HYDROCHLORIDE [Concomitant]
     Active Substance: DONEPEZIL HYDROCHLORIDE
  21. POTASSIUM CHLORIDE [Concomitant]
     Active Substance: POTASSIUM CHLORIDE
  22. HYDROCHLOROTHIAZIDE [Concomitant]
     Active Substance: HYDROCHLOROTHIAZIDE
  23. CARBIDOPA\LEVODOPA [Concomitant]
     Active Substance: CARBIDOPA\LEVODOPA
  24. METOPROLOL SUCCINATE [Concomitant]
     Active Substance: METOPROLOL SUCCINATE

REACTIONS (4)
  - COVID-19 [Recovered/Resolved]
  - Fall [Recovering/Resolving]
  - Foot fracture [Recovering/Resolving]
  - Product dose omission issue [Unknown]
